FAERS Safety Report 8790495 (Version 1)
Quarter: 2012Q4

REPORT INFORMATION
  Report Type: Spontaneous
  Country: US (occurrence: None)
  Receive Date: 20120911
  Receipt Date: 20120911
  Transmission Date: 20130627
  Serious: No
  Sender: FDA-Public Use
  Company Number: None

PATIENT
  Age: 72 Year
  Sex: Male
  Weight: 73.94 kg

DRUGS (2)
  1. BUPROPION HCL XL 300 MG TABLET ANCHEN PHARMACUTICALS [Suspect]
     Indication: MAJOR DEPRESSION
     Dosage: 1 DAILY
  2. BUPROPION HCL XL 300 MG TABLET ANCHEN PHARMACUTICALS [Suspect]
     Indication: ANXIETY
     Dosage: 1 DAILY

REACTIONS (3)
  - Medication residue [None]
  - Anxiety [None]
  - Depression [None]
